FAERS Safety Report 20338988 (Version 1)
Quarter: 2022Q1

REPORT INFORMATION
  Report Type: Report from Study
  Country: EG (occurrence: EG)
  Receive Date: 20220116
  Receipt Date: 20220116
  Transmission Date: 20220423
  Serious: Yes (Other)
  Sender: FDA-Public Use
  Company Number: EG-NOVARTISPH-NVSC2022EG006253

PATIENT
  Age: 38 Year
  Sex: Female

DRUGS (9)
  1. COSENTYX [Suspect]
     Active Substance: SECUKINUMAB
     Indication: Psoriasis
     Dosage: 2 DOSAGE FORM, Q2W ( (TWO PREFILLED PENS EVERY TWO WEEKS SC FOR ONE MONTH AS A LOADING DOSE)
     Route: 058
     Dates: start: 202101, end: 202108
  2. COSENTYX [Suspect]
     Active Substance: SECUKINUMAB
     Dosage: 2 DOSAGE FORM, QMO (150 MG TWO PREFILLED PENS PER MONTH)
     Route: 058
     Dates: start: 202111
  3. COSENTYX [Suspect]
     Active Substance: SECUKINUMAB
     Dosage: UNK
     Route: 065
  4. CARBIMAZOLE [Suspect]
     Active Substance: CARBIMAZOLE
     Indication: Hyperthyroidism
     Dosage: UNK
     Route: 065
  5. EUTHYROX [Concomitant]
     Active Substance: LEVOTHYROXINE SODIUM
     Indication: Thyroid disorder
     Dosage: 150 MG (ONE AND HALF TABLET)
     Route: 065
     Dates: start: 201902
  6. ZINC [Concomitant]
     Active Substance: ZINC
     Indication: Supplementation therapy
     Dosage: 1 DOSAGE FORM, QD
     Route: 065
     Dates: start: 202108
  7. CURCUMIN [Concomitant]
     Active Substance: CURCUMIN
     Indication: Psoriasis
     Dosage: 1 DOSAGE FORM, QD
     Route: 065
     Dates: start: 202108
  8. OMEGA 3 [Concomitant]
     Active Substance: CAPSAICIN
     Indication: Supplementation therapy
     Dosage: 1 DOSAGE FORM, QD
     Route: 065
     Dates: start: 202108
  9. COLLAGEN [Concomitant]
     Active Substance: COLLAGEN
     Indication: Supplementation therapy
     Dosage: 1 DOSAGE FORM, QD
     Route: 065
     Dates: start: 202108

REACTIONS (14)
  - Hypothyroidism [Unknown]
  - Limb discomfort [Recovered/Resolved]
  - Dizziness [Recovered/Resolved]
  - Vitamin D deficiency [Unknown]
  - Rash [Recovering/Resolving]
  - Lethargy [Unknown]
  - Hypersomnia [Unknown]
  - Dizziness [Unknown]
  - Pigmentation disorder [Not Recovered/Not Resolved]
  - Skin exfoliation [Not Recovered/Not Resolved]
  - Blood calcium decreased [Unknown]
  - Hypotension [Unknown]
  - Heart rate irregular [Unknown]
  - Inappropriate schedule of product administration [Not Recovered/Not Resolved]

NARRATIVE: CASE EVENT DATE: 20210101
